FAERS Safety Report 7216110-X (Version None)
Quarter: 2011Q1

REPORT INFORMATION
  Report Type: 
  Country: None (occurrence: None)
  Receive Date: 20110107
  Receipt Date: 20101230
  Transmission Date: 20110831
  Serious: Yes (Life-Threatening)
  Sender: FDA-Public Use
  Company Number: DE-CELGENEUS-062-C5013-10091500

PATIENT
  Age: 69 Year
  Sex: Male
  Weight: 98 kg

DRUGS (17)
  1. ROSICED [Concomitant]
     Route: 061
     Dates: start: 20100830
  2. CC-5013 [Suspect]
     Indication: MULTIPLE MYELOMA
     Route: 048
     Dates: start: 20100802
  3. CC-5013 [Suspect]
     Route: 048
     Dates: start: 20101122
  4. MORPHINHEMISULFAT [Concomitant]
     Route: 048
     Dates: start: 20100628, end: 20100801
  5. MORPHINHEMISULFAT [Concomitant]
     Route: 048
     Dates: start: 20100802, end: 20100803
  6. ENOXAPRIN-NATRIUM [Concomitant]
     Indication: THROMBOSIS PROPHYLAXIS
     Route: 058
     Dates: start: 20100809
  7. CC-5013 [Suspect]
     Route: 048
     Dates: start: 20100830, end: 20100915
  8. MORPHINHEMISULFAT [Concomitant]
     Route: 048
     Dates: start: 20100804, end: 20100822
  9. MORPHINHEMISULFAT [Concomitant]
     Route: 048
     Dates: start: 20100823
  10. PAMIDRONATE DISODIUM [Concomitant]
     Indication: PROPHYLAXIS
     Route: 051
     Dates: start: 20100629
  11. MOVICOL [Concomitant]
     Route: 048
     Dates: start: 20100601
  12. FOLSAN [Concomitant]
     Indication: FOLATE DEFICIENCY
     Dosage: 8/10MG
     Route: 048
     Dates: start: 20100601
  13. METOPROLOL TARTRATE [Concomitant]
     Indication: HYPERTENSION
     Route: 048
     Dates: start: 20100201
  14. DEXAMETHASONE [Suspect]
     Indication: MULTIPLE MYELOMA
     Route: 065
     Dates: start: 20100802
  15. DEXAMETHASONE [Suspect]
     Route: 065
     Dates: start: 20100830, end: 20100915
  16. PANTOPRAZOLE [Concomitant]
     Indication: GASTRITIS PROPHYLAXIS
     Route: 048
     Dates: start: 20100601
  17. CLEXANE [Concomitant]
     Route: 065

REACTIONS (1)
  - INTESTINAL PERFORATION [None]
